FAERS Safety Report 8801568 (Version 2)
Quarter: 2012Q4

REPORT INFORMATION
  Report Type: Report from Study
  Country: GB (occurrence: GB)
  Receive Date: 20120921
  Receipt Date: 20121106
  Transmission Date: 20130627
  Serious: Yes (Hospitalization)
  Sender: FDA-Public Use
  Company Number: GB-ROCHE-1125334

PATIENT
  Sex: Female
  Weight: 93 kg

DRUGS (2)
  1. TOCILIZUMAB [Suspect]
     Indication: RHEUMATOID ARTHRITIS
     Dosage: Last dose prior to SAE was 03/Apr/2012
     Route: 065
     Dates: start: 20120110
  2. METHOTREXATE [Concomitant]
     Route: 065
     Dates: end: 20120801

REACTIONS (2)
  - Pancreatitis [Unknown]
  - Cholelithiasis [Unknown]
